FAERS Safety Report 16951021 (Version 2)
Quarter: 2025Q3

REPORT INFORMATION
  Report Type: Spontaneous
  Country: CA (occurrence: CA)
  Receive Date: 20191023
  Receipt Date: 20250715
  Transmission Date: 20251021
  Serious: Yes (Other)
  Sender: MYLAN
  Company Number: CA-PFIZER INC-2019454314

PATIENT
  Age: 24 Year
  Sex: Female

DRUGS (4)
  1. DILANTIN [Interacting]
     Active Substance: PHENYTOIN
     Indication: Seizure
  2. PHENYTOIN [Interacting]
     Active Substance: PHENYTOIN
     Indication: Seizure
  3. EMEND [Interacting]
     Active Substance: APREPITANT
     Indication: Nausea
  4. EMEND [Interacting]
     Active Substance: APREPITANT

REACTIONS (4)
  - Seizure [Unknown]
  - Drug interaction [Unknown]
  - Therapeutic product effect decreased [Unknown]
  - Product use in unapproved indication [Unknown]
